FAERS Safety Report 4881640-2 (Version None)
Quarter: 2006Q1

REPORT INFORMATION
  Report Type: 
  Country: None (occurrence: None)
  Receive Date: 20060116
  Receipt Date: 20060110
  Transmission Date: 20060701
  Serious: Yes (Death)
  Sender: FDA-Public Use
  Company Number: PHEH2006US00780

PATIENT
  Age: 93 Year
  Sex: Female

DRUGS (14)
  1. ACETAMINOPHEN [Concomitant]
     Dosage: 500 MG, QD
  2. PRILOSEC [Concomitant]
     Dosage: 20 MG, QD
  3. FERROUS SULFATE TAB [Concomitant]
     Dosage: 325 MG, QD
  4. OYSTER SHELL CALCIUM [Concomitant]
     Dosage: 500 MG, QD
  5. PLAVIX [Concomitant]
     Dosage: 75 MG, QD
  6. SYNTHROID [Concomitant]
     Dosage: 0.112 MG, QD
  7. FUROSEMIDE [Concomitant]
     Dosage: 40 MG, QD
  8. KLOR-CON [Concomitant]
     Dosage: 10 MEQ, QD
  9. MULTIVITAMIN [Concomitant]
     Dosage: 1 UNK, QD
  10. DILTIAZEM HCL [Concomitant]
     Dosage: 180 MG, QD
  11. METOPROLOL [Concomitant]
     Dosage: 12.5 MG, QD
  12. MYSOLINE [Concomitant]
     Dosage: 50 MG, QD
  13. PROCANBID [Concomitant]
     Dosage: 500 MG, QD
  14. CLOZARIL [Suspect]
     Dosage: 12.5 MG, QHS

REACTIONS (1)
  - CARDIAC ARREST [None]
